FAERS Safety Report 14009583 (Version 1)
Quarter: 2017Q3

REPORT INFORMATION
  Report Type: Not Available
  Country: None (occurrence: US)
  Receive Date: 20170925
  Receipt Date: 20170925
  Transmission Date: 20171128
  Serious: No
  Sender: FDA-Public Use
  Company Number: US-AKORN-68681

PATIENT
  Age: 91 Year
  Sex: Female

DRUGS (1)
  1. TAFLUPROST [Suspect]
     Active Substance: TAFLUPROST

REACTIONS (3)
  - Blindness [Recovered/Resolved]
  - Eye pain [Recovered/Resolved]
  - Ocular hyperaemia [Recovered/Resolved]
